FAERS Safety Report 11705747 (Version 7)
Quarter: 2017Q3

REPORT INFORMATION
  Report Type: Spontaneous
  Country: US (occurrence: US)
  Receive Date: 20151106
  Receipt Date: 20170721
  Transmission Date: 20171127
  Serious: Yes (Congenital Anomaly, Other)
  Sender: FDA-Public Use
  Company Number: PHEH2015US022451

PATIENT
  Sex: Male

DRUGS (2)
  1. ZOFRAN [Suspect]
     Active Substance: ONDANSETRON HYDROCHLORIDE
     Indication: FOETAL EXPOSURE DURING PREGNANCY
     Dosage: MOTHER^S DOSE: 04 MG, Q8H
     Route: 064
  2. ONDANSETRON DR REDDY [Suspect]
     Active Substance: ONDANSETRON
     Indication: FOETAL EXPOSURE DURING PREGNANCY
     Dosage: MOTHER DOSE: 1 DF, Q8H
     Route: 064

REACTIONS (36)
  - Multiple congenital abnormalities [Unknown]
  - Otitis media chronic [Unknown]
  - Sinusitis [Unknown]
  - Sinus tachycardia [Unknown]
  - Congenital oral malformation [Unknown]
  - Ankyloglossia congenital [Unknown]
  - Feeding disorder [Unknown]
  - Dysmorphism [Unknown]
  - Cleft lip [Unknown]
  - Upper respiratory tract infection [Unknown]
  - Cleft palate [Unknown]
  - Jaundice neonatal [Unknown]
  - Premature baby [Unknown]
  - Otitis media acute [Unknown]
  - Impetigo [Unknown]
  - Poor sucking reflex [Unknown]
  - Congenital anomaly [Unknown]
  - Nose deformity [Unknown]
  - Emotional distress [Unknown]
  - Anhedonia [Unknown]
  - Cough [Unknown]
  - Eustachian tube dysfunction [Unknown]
  - Mouth injury [Unknown]
  - Infantile apnoea [Unknown]
  - Sepsis neonatal [Unknown]
  - Astigmatism [Unknown]
  - Conjunctivitis [Unknown]
  - Gastrooesophageal reflux disease [Unknown]
  - Foetal exposure during pregnancy [Unknown]
  - Bradycardia neonatal [Unknown]
  - Anaemia neonatal [Unknown]
  - Pain [Unknown]
  - Injury [Unknown]
  - Ear infection [Unknown]
  - Nasal congestion [Unknown]
  - Anxiety [Unknown]
